FAERS Safety Report 24130630 (Version 2)
Quarter: 2024Q3

REPORT INFORMATION
  Report Type: Spontaneous
  Country: CH (occurrence: CH)
  Receive Date: 20240724
  Receipt Date: 20240801
  Transmission Date: 20241016
  Serious: Yes (Hospitalization, Other)
  Sender: JOHNSON AND JOHNSON
  Company Number: CH-JNJFOC-20240747999

PATIENT
  Age: 62 Year
  Sex: Female

DRUGS (2)
  1. REMICADE [Suspect]
     Active Substance: INFLIXIMAB
     Indication: Rheumatoid arthritis
     Route: 041
     Dates: start: 202403
  2. REMICADE [Suspect]
     Active Substance: INFLIXIMAB
     Indication: Colitis microscopic

REACTIONS (3)
  - Osteomyelitis [Unknown]
  - Septic shock [Unknown]
  - Off label use [Unknown]
